FAERS Safety Report 5522348-X (Version None)
Quarter: 2007Q4

REPORT INFORMATION
  Report Type: 
  Country: None (occurrence: None)
  Receive Date: 20071120
  Receipt Date: 20071112
  Transmission Date: 20080405
  Serious: Yes (Other)
  Sender: FDA-Public Use
  Company Number: FR-ELI_LILLY_AND_COMPANY-FR200711002781

PATIENT
  Age: 75 Year
  Sex: Female

DRUGS (4)
  1. FORTEO [Suspect]
     Indication: OSTEOPOROSIS
     Dosage: 20 UG, DAILY (1/D)
     Route: 058
     Dates: start: 20060926, end: 20071109
  2. DIGOXIN [Concomitant]
     Indication: ARRHYTHMIA
  3. LASIX [Concomitant]
     Indication: HYPERTENSION
  4. OXYGEN [Concomitant]
     Indication: RESPIRATORY FAILURE

REACTIONS (3)
  - ARRHYTHMIA [None]
  - OEDEMA PERIPHERAL [None]
  - PULMONARY OEDEMA [None]
